FAERS Safety Report 9098876 (Version 1)
Quarter: 2013Q1

REPORT INFORMATION
  Report Type: Other
  Country: BR (occurrence: BR)
  Receive Date: 20130213
  Receipt Date: 20130213
  Transmission Date: 20140127
  Serious: Yes (Other)
  Sender: FDA-Public Use
  Company Number: BR-BRISTOL-MYERS SQUIBB COMPANY-17363284

PATIENT
  Age: 46 Year
  Sex: Male

DRUGS (5)
  1. EFAVIRENZ [Suspect]
     Indication: HIV INFECTION
     Route: 048
     Dates: end: 200905
  2. LAMIVUDINE [Suspect]
     Indication: HIV INFECTION
     Route: 065
     Dates: end: 200905
  3. ZIDOVUDINE [Suspect]
     Indication: HIV INFECTION
     Route: 065
     Dates: end: 200905
  4. LOPINAVIR + RITONAVIR [Suspect]
     Indication: HIV INFECTION
     Route: 065
     Dates: end: 200905
  5. TENOFOVIR DISOPROXIL FUMARATE [Suspect]
     Indication: HIV INFECTION
     Dates: end: 200905

REACTIONS (2)
  - Porphyria non-acute [Not Recovered/Not Resolved]
  - Drug ineffective [Unknown]
